FAERS Safety Report 5265293-X (Version None)
Quarter: 2007Q1

REPORT INFORMATION
  Report Type: 
  Country: None (occurrence: None)
  Receive Date: 20061214
  Receipt Date: 20051115
  Transmission Date: 20070707
  Serious: Yes (Other)
  Sender: FDA-Public Use
  Company Number: 2005UW17414

PATIENT
  Sex: Female

DRUGS (3)
  1. PULMICORT RESPULES [Suspect]
     Dosage: 2 ML BID IH
     Route: 055
     Dates: start: 20050801
  2. PULMICORT [Suspect]
     Dates: start: 20051001
  3. DUONEB [Concomitant]

REACTIONS (2)
  - FATIGUE [None]
  - MEDICATION ERROR [None]
